FAERS Safety Report 8170280-8 (Version None)
Quarter: 2012Q1

REPORT INFORMATION
  Report Type: 
  Country: None (occurrence: None)
  Receive Date: 20120104
  Receipt Date: 20111122
  Transmission Date: 20120608
  Serious: No
  Sender: FDA-Public Use
  Company Number: 2011HGS-002688

PATIENT
  Age: 59 Year
  Sex: Female
  Weight: 133.3575 kg

DRUGS (6)
  1. METHOTREXATE [Concomitant]
  2. GABAPENTIN [Concomitant]
  3. VICODIN (VICODIN) (PARACETAMOL, HYDROCODONE BITARTRATE) [Concomitant]
  4. BENLYSTA [Suspect]
     Indication: SYSTEMIC LUPUS ERYTHEMATOSUS
     Dosage: 10 MG/KG, 1 IN 28 D, INTRAVENOUS DRIP
     Route: 041
     Dates: start: 20110725
  5. PREVACID (LANSOPRAOZLE) (LANSOPRAZOLE) [Concomitant]
  6. METOPROLOL SUCCINATE [Concomitant]

REACTIONS (7)
  - PAIN [None]
  - GASTROOESOPHAGEAL REFLUX DISEASE [None]
  - FATIGUE [None]
  - PULMONARY CONGESTION [None]
  - NASOPHARYNGITIS [None]
  - NAUSEA [None]
  - DIARRHOEA [None]
